FAERS Safety Report 24035137 (Version 2)
Quarter: 2024Q3

REPORT INFORMATION
  Report Type: Report from Study
  Country: US (occurrence: US)
  Receive Date: 20240701
  Receipt Date: 20240711
  Transmission Date: 20241017
  Serious: Yes (Hospitalization)
  Sender: JOHNSON AND JOHNSON
  Company Number: US-JNJFOC-20240659393

PATIENT
  Sex: Male
  Weight: 56.4 kg

DRUGS (3)
  1. EPOPROSTENOL SODIUM [Suspect]
     Active Substance: EPOPROSTENOL SODIUM
     Indication: Pulmonary arterial hypertension
     Route: 042
  2. OPSUMIT [Concomitant]
     Active Substance: MACITENTAN
  3. TADALAFIL [Concomitant]
     Active Substance: TADALAFIL

REACTIONS (10)
  - Complication associated with device [Unknown]
  - Device occlusion [Unknown]
  - Drug delivery system malfunction [Unknown]
  - Product administration interrupted [Unknown]
  - Hypotension [Unknown]
  - Headache [Unknown]
  - Diarrhoea [Unknown]
  - Nausea [Unknown]
  - Vomiting [Unknown]
  - Underdose [Unknown]
